FAERS Safety Report 23142853 (Version 1)
Quarter: 2023Q4

REPORT INFORMATION
  Report Type: Spontaneous
  Country: US (occurrence: US)
  Receive Date: 20231103
  Receipt Date: 20231103
  Transmission Date: 20240109
  Serious: No
  Sender: FDA-Public Use
  Company Number: US-GSK-US2023AMR149548

PATIENT

DRUGS (1)
  1. BENLYSTA [Suspect]
     Active Substance: BELIMUMAB
     Indication: Systemic lupus erythematosus
     Dosage: UNK

REACTIONS (11)
  - Rash [Unknown]
  - Oral pain [Unknown]
  - Rhinalgia [Unknown]
  - Arthralgia [Unknown]
  - Joint swelling [Unknown]
  - Depressed mood [Unknown]
  - Migraine [Unknown]
  - Pyrexia [Recovered/Resolved]
  - Night sweats [Unknown]
  - Brain fog [Unknown]
  - Drug ineffective [Unknown]
